FAERS Safety Report 4481918-0 (Version None)
Quarter: 2004Q4

REPORT INFORMATION
  Report Type: 
  Country: None (occurrence: None)
  Receive Date: 20041020
  Receipt Date: 20041006
  Transmission Date: 20050328
  Serious: Yes (Death, Hospitalization)
  Sender: FDA-Public Use
  Company Number: 195025

PATIENT
  Age: 68 Year
  Sex: Male

DRUGS (4)
  1. AVONEX [Suspect]
     Indication: MULTIPLE SCLEROSIS
     Dosage: 30 M CG QW IM
     Route: 030
     Dates: start: 19980501, end: 20030401
  2. AVONEX [Suspect]
     Indication: MULTIPLE SCLEROSIS
     Dosage: 30 MCG QW IM
     Route: 030
     Dates: start: 20031101, end: 20040101
  3. BACLOFEN [Concomitant]
  4. OMEPRAZOLE [Concomitant]

REACTIONS (3)
  - COLON CANCER STAGE III [None]
  - DISEASE PROGRESSION [None]
  - MULTIPLE SCLEROSIS [None]
